FAERS Safety Report 8972406 (Version 5)
Quarter: 2014Q1

REPORT INFORMATION
  Report Type: Spontaneous
  Country: US (occurrence: US)
  Receive Date: 20121218
  Receipt Date: 20140206
  Transmission Date: 20141002
  Serious: Yes (Death)
  Sender: FDA-Public Use
  Company Number: US-JNJFOC-20121207900

PATIENT
  Age: 64 Year
  Sex: Female
  Weight: 117.94 kg

DRUGS (16)
  1. XARELTO [Suspect]
     Indication: CEREBROVASCULAR ACCIDENT PROPHYLAXIS
     Route: 048
     Dates: start: 20120719, end: 201207
  2. XARELTO [Suspect]
     Indication: ATRIAL FIBRILLATION
     Route: 048
     Dates: start: 20120719, end: 201207
  3. ASPIRIN [Suspect]
     Indication: PRODUCT USED FOR UNKNOWN INDICATION
     Route: 065
  4. WARFARIN [Suspect]
     Indication: PRODUCT USED FOR UNKNOWN INDICATION
     Route: 065
     Dates: start: 201207
  5. NACL +KCL [Concomitant]
     Indication: PRODUCT USED FOR UNKNOWN INDICATION
     Dosage: 0.9% SODIUM CHLORIDE WITH 20MEQ/L INFUSION
     Route: 042
  6. LOPRESSOR [Concomitant]
     Route: 048
  7. CARDENE [Concomitant]
     Dosage: 5-15MG/HOUR
     Route: 042
  8. HUMALOG [Concomitant]
     Route: 058
  9. ZOFRAN [Concomitant]
     Route: 042
  10. NORMODYNE [Concomitant]
     Route: 042
  11. ATIVAN [Concomitant]
     Route: 042
  12. ZEMURON [Concomitant]
     Dosage: 0.6MG/KG
     Route: 042
  13. TRANDATE [Concomitant]
     Route: 042
  14. LIPITOR [Concomitant]
     Route: 065
  15. METFORMIN [Concomitant]
     Route: 065
  16. FLONASE [Concomitant]
     Route: 065

REACTIONS (2)
  - Haemorrhage intracranial [Fatal]
  - Malignant hypertension [Unknown]
